FAERS Safety Report 8432052-6 (Version None)
Quarter: 2012Q2

REPORT INFORMATION
  Report Type: 
  Country: None (occurrence: None)
  Receive Date: 20120606
  Receipt Date: 20120521
  Transmission Date: 20120825
  Serious: Yes (Other)
  Sender: FDA-Public Use
  Company Number: 2012MPI00226

PATIENT
  Sex: Male

DRUGS (1)
  1. BRENTUXIMAB VEDOTIN (BRENTUXIMAB VEDOTIN) INJECTION [Suspect]
     Indication: PSEUDOLYMPHOMA
     Dosage: 165 MG,   , INTRAVENOUS
     Route: 042
     Dates: start: 20120420

REACTIONS (3)
  - HYPERTRANSAMINASAEMIA [None]
  - CONSTIPATION [None]
  - DYSURIA [None]
